FAERS Safety Report 4941593-5 (Version None)
Quarter: 2006Q1

REPORT INFORMATION
  Report Type: 
  Country: None (occurrence: None)
  Receive Date: 20060313
  Receipt Date: 20051208
  Transmission Date: 20060701
  Serious: Yes (Other)
  Sender: FDA-Public Use
  Company Number: US-AVENTIS-200520365US

PATIENT
  Sex: Male

DRUGS (3)
  1. NASACORT AQ [Suspect]
     Indication: HYPERSENSITIVITY
     Dosage: DOSE: UNKNOWN
     Route: 045
  2. LIPITOR [Concomitant]
     Dosage: DOSE: UNKNOWN
  3. LOPID [Concomitant]
     Dosage: DOSE: UNK

REACTIONS (1)
  - CATARACT [None]
